FAERS Safety Report 18313061 (Version 3)
Quarter: 2021Q1

REPORT INFORMATION
  Report Type: Report from Study
  Country: None (occurrence: US)
  Receive Date: 20200925
  Receipt Date: 20210215
  Transmission Date: 20210419
  Serious: Yes (Death, Hospitalization, Other)
  Sender: FDA-Public Use
  Company Number: US-ABBVIE-19K-163-2911831-00

PATIENT
  Sex: Male

DRUGS (3)
  1. VENCLEXTA [Suspect]
     Active Substance: VENETOCLAX
     Indication: MYELOFIBROSIS
  2. VENCLEXTA [Suspect]
     Active Substance: VENETOCLAX
     Indication: MYELOPROLIFERATIVE NEOPLASM
     Dosage: TAKE ONE TABLET
     Route: 048
  3. VENCLEXTA [Suspect]
     Active Substance: VENETOCLAX
     Indication: ESSENTIAL THROMBOCYTHAEMIA

REACTIONS (4)
  - Off label use [Unknown]
  - Hospice care [Unknown]
  - Back pain [Unknown]
  - Death [Fatal]
